FAERS Safety Report 4761929-8 (Version None)
Quarter: 2005Q3

REPORT INFORMATION
  Report Type: 
  Country: None (occurrence: None)
  Receive Date: 20050831
  Receipt Date: 20050527
  Transmission Date: 20060218
  Serious: Yes (Other)
  Sender: FDA-Public Use
  Company Number: WAES 0505USA03340

PATIENT
  Age: 5 Month

DRUGS (1)
  1. SINGULAIR [Suspect]
     Indication: RHINITIS SEASONAL
     Dosage: 4 MG/PO
     Route: 048

REACTIONS (4)
  - CONVULSION [None]
  - PRESCRIBED OVERDOSE [None]
  - URTICARIA [None]
  - WHEEZING [None]
